FAERS Safety Report 6827362-X (Version None)
Quarter: 2010Q3

REPORT INFORMATION
  Report Type: 
  Country: None (occurrence: None)
  Receive Date: 20100709
  Receipt Date: 20070112
  Transmission Date: 20110219
  Serious: No
  Sender: FDA-Public Use
  Company Number: US-PFIZER INC-2007004446

PATIENT
  Sex: Female
  Weight: 59.9 kg

DRUGS (16)
  1. CHANTIX [Suspect]
     Indication: SMOKING CESSATION THERAPY
     Dates: start: 20070108
  2. VITAMINS [Concomitant]
  3. CALCIUM CARBONATE [Concomitant]
  4. ACETYLSALICYLIC ACID [Concomitant]
  5. POTASSIUM [Concomitant]
  6. PENTOXIFYLLINE [Concomitant]
  7. MONTELUKAST SODIUM [Concomitant]
  8. DEMADEX [Concomitant]
  9. TOPROL-XL [Concomitant]
  10. TEGRETOL [Concomitant]
  11. QUINAMM [Concomitant]
  12. ATIVAN [Concomitant]
  13. LEVOTHYROXINE SODIUM [Concomitant]
  14. ANTIHYPERTENSIVES [Concomitant]
  15. OXYGEN [Concomitant]
  16. NITROGLYCERIN [Concomitant]
     Indication: ANGINA PECTORIS

REACTIONS (1)
  - DRUG INEFFECTIVE [None]
